FAERS Safety Report 11610454 (Version 2)
Quarter: 2015Q4

REPORT INFORMATION
  Report Type: Spontaneous
  Country: US (occurrence: US)
  Receive Date: 20151008
  Receipt Date: 20151118
  Transmission Date: 20160304
  Serious: Yes (Hospitalization)
  Sender: FDA-Public Use
  Company Number: US-BEH-2015054557

PATIENT
  Age: 6 Year
  Sex: Female

DRUGS (4)
  1. CORIFACT [Suspect]
     Active Substance: FACTOR XIII CONCENTRATE (HUMAN)
     Indication: CONGENITAL DYSFIBRINOGENAEMIA
     Route: 042
     Dates: start: 20141007
  2. RIASTAP [Concomitant]
     Active Substance: FIBRINOGEN HUMAN
  3. CORIFACT [Suspect]
     Active Substance: FACTOR XIII CONCENTRATE (HUMAN)
     Indication: FACTOR XIII DEFICIENCY
     Route: 042
     Dates: start: 20150917
  4. AUGMENTIN [Concomitant]
     Active Substance: AMOXICILLIN\CLAVULANATE POTASSIUM
     Dosage: 400 MG/57 MG/5 ML (5 ML VIA G-TUBE) EVERY 12 HOURS FOR 5 DAYS

REACTIONS (9)
  - Constipation [Recovered/Resolved]
  - Escherichia urinary tract infection [Recovered/Resolved]
  - Urine output decreased [Recovered/Resolved]
  - Pain [Recovered/Resolved]
  - Pyrexia [Recovered/Resolved]
  - Temperature regulation disorder [Recovered/Resolved]
  - Vomiting [Recovered/Resolved]
  - Body temperature decreased [Recovered/Resolved]
  - Malaise [Recovered/Resolved]

NARRATIVE: CASE EVENT DATE: 20150916
